FAERS Safety Report 8841712 (Version 1)
Quarter: 2012Q4

REPORT INFORMATION
  Report Type: Spontaneous
  Country: US (occurrence: None)
  Receive Date: 20121011
  Receipt Date: 20121011
  Transmission Date: 20130627
  Serious: Yes (Other)
  Sender: FDA-Public Use
  Company Number: TPA2012A07547

PATIENT
  Sex: Female

DRUGS (1)
  1. PREVACID [Suspect]

REACTIONS (2)
  - Fall [None]
  - Femur fracture [None]
